FAERS Safety Report 5871288-5 (Version None)
Quarter: 2008Q3

REPORT INFORMATION
  Report Type: 
  Country: None (occurrence: None)
  Receive Date: 20080904
  Receipt Date: 20080904
  Transmission Date: 20090109
  Serious: Yes (Other)
  Sender: FDA-Public Use
  Company Number: None

PATIENT
  Age: 10 Year
  Sex: Male
  Weight: 35.3806 kg

DRUGS (4)
  1. MELATONIN - SCHISS SLEEP SUPPORT [Suspect]
     Indication: SLEEP DISORDER
     Dosage: 3MG HS PO
     Route: 048
     Dates: start: 20050101, end: 20080101
  2. RESPIRDOL [Concomitant]
  3. ZOLOFT [Concomitant]
  4. SIMETHICONE [Concomitant]

REACTIONS (4)
  - EOSINOPHILIC OESOPHAGITIS [None]
  - MYALGIA [None]
  - PHARMACEUTICAL PRODUCT COMPLAINT [None]
  - THERAPEUTIC PRODUCT CONTAMINATION [None]
